FAERS Safety Report 19703299 (Version 4)
Quarter: 2022Q1

REPORT INFORMATION
  Report Type: Report from Study
  Country: US (occurrence: US)
  Receive Date: 20210816
  Receipt Date: 20220216
  Transmission Date: 20220424
  Serious: Yes (Other)
  Sender: FDA-Public Use
  Company Number: NVSC2021US181096

PATIENT
  Sex: Male

DRUGS (2)
  1. ENTRESTO [Suspect]
     Active Substance: SACUBITRIL\VALSARTAN
     Indication: Product used for unknown indication
     Dosage: 24/26 MG
     Route: 048
     Dates: start: 20210526
  2. ENTRESTO [Suspect]
     Active Substance: SACUBITRIL\VALSARTAN
     Dosage: 1 DOSAGE FORM, BID (49\51 MG), (STARTED 2 AND A HALF WEEKS AGO)
     Route: 048

REACTIONS (7)
  - Ventricular dyssynchrony [Unknown]
  - Cardiac disorder [Unknown]
  - Hepatic cirrhosis [Unknown]
  - Pericardial effusion [Unknown]
  - Dyspnoea [Unknown]
  - Blood glucose increased [Unknown]
  - Hyponatraemia [Unknown]
